FAERS Safety Report 18928899 (Version 1)
Quarter: 2021Q1

REPORT INFORMATION
  Report Type: Spontaneous
  Country: DE (occurrence: DE)
  Receive Date: 20210223
  Receipt Date: 20210223
  Transmission Date: 20210420
  Serious: Yes (Life-Threatening, Other)
  Sender: FDA-Public Use
  Company Number: DE-IBIGEN-2021.09909

PATIENT
  Age: 37 Year
  Sex: Female

DRUGS (1)
  1. PIPERACILLIN. [Suspect]
     Active Substance: PIPERACILLIN SODIUM
     Dosage: ()

REACTIONS (3)
  - Autoimmune haemolytic anaemia [Recovered/Resolved]
  - Intravascular haemolysis [Recovered/Resolved]
  - Haemolytic anaemia [Recovered/Resolved]
